FAERS Safety Report 9258190 (Version 1)
Quarter: 2013Q1

REPORT INFORMATION
  Report Type: Spontaneous
  Country: US (occurrence: None)
  Receive Date: 20121212
  Receipt Date: 20121212
  Transmission Date: 20140127
  Serious: No
  Sender: FDA-Public Use
  Company Number: 1208USA008723

PATIENT
  Age: 30 Year
  Sex: Male

DRUGS (3)
  1. REBETOL [Suspect]
     Indication: HEPATITIS C
     Dates: start: 20120712
  2. VICTRELIS [Suspect]
     Indication: HEPATITIS C
     Dates: start: 20120809
  3. PEGINTERFERON ALFA-2B [Suspect]
     Indication: HEPATITIS C
     Dates: start: 20120712

REACTIONS (2)
  - Abdominal pain [None]
  - Constipation [None]
